FAERS Safety Report 6456209-9 (Version None)
Quarter: 2009Q4

REPORT INFORMATION
  Report Type: 
  Country: None (occurrence: None)
  Receive Date: 20091125
  Receipt Date: 20091111
  Transmission Date: 20100525
  Serious: Yes (Hospitalization, Other)
  Sender: FDA-Public Use
  Company Number: US-ELI_LILLY_AND_COMPANY-US200911003237

PATIENT
  Sex: Female

DRUGS (12)
  1. FORTEO [Suspect]
     Indication: OSTEOPOROSIS
     Dosage: 20 UG, DAILY (1/D)
     Dates: start: 20090711
  2. CORTEF [Concomitant]
  3. BENICAR [Concomitant]
     Indication: BLOOD PRESSURE
  4. VERAPAMIL [Concomitant]
  5. OGEN [Concomitant]
  6. LASIX [Concomitant]
  7. METHADONE HCL [Concomitant]
  8. DILAUDID [Concomitant]
  9. LYRICA [Concomitant]
  10. SEREVENT [Concomitant]
  11. PULMICORT [Concomitant]
  12. SINGULAIR [Concomitant]
     Indication: ASTHMA
     Dosage: UNK, DAILY (1/D)

REACTIONS (3)
  - ADDISON'S DISEASE [None]
  - EATING DISORDER [None]
  - NAUSEA [None]
